FAERS Safety Report 7692880-1 (Version None)
Quarter: 2011Q3

REPORT INFORMATION
  Report Type: 
  Country: None (occurrence: None)
  Receive Date: 20110815
  Receipt Date: 20110803
  Transmission Date: 20111222
  Serious: Yes (Other)
  Sender: FDA-Public Use
  Company Number: 1002816

PATIENT
  Age: 65 Year
  Sex: Female

DRUGS (10)
  1. (ZOPHREN /00955301/) [Concomitant]
  2. CYCLOPHOSPHAMIDE [Suspect]
     Dosage: 900 MG MILLIGRAAM(S), 3 WEEK, INTRAVENOUS  800 MG MILLIGRAM(S) (3 WEEK)  750 MG MILLIGRAM(S) (3 WEEK
     Route: 042
     Dates: start: 20110428
  3. CYCLOPHOSPHAMIDE [Suspect]
     Dosage: 900 MG MILLIGRAAM(S), 3 WEEK, INTRAVENOUS  800 MG MILLIGRAM(S) (3 WEEK)  750 MG MILLIGRAM(S) (3 WEEK
     Route: 042
     Dates: start: 20110519
  4. CYCLOPHOSPHAMIDE [Suspect]
     Dosage: 900 MG MILLIGRAAM(S), 3 WEEK, INTRAVENOUS  800 MG MILLIGRAM(S) (3 WEEK)  750 MG MILLIGRAM(S) (3 WEEK
     Route: 042
     Dates: start: 20110609
  5. APREPITANT [Suspect]
     Dosage: 125 MG MILLIGRAM(S),  , ORAL  80 MG MILLIGRAM(S)
     Route: 048
     Dates: start: 20110609, end: 20110609
  6. APREPITANT [Suspect]
     Dosage: 125 MG MILLIGRAM(S),  , ORAL  80 MG MILLIGRAM(S)
     Route: 048
     Dates: start: 20110610, end: 20110611
  7. DOCETAXEL [Suspect]
     Dosage: 100 MG MILLIGRAM(S), 3 WEEK, INTRAVENOUS   100 MG MILLIGRAM (S)  (3 WEEK) 90 MG MILLIGRAM(S) (3 WEEK
     Route: 042
     Dates: start: 20110519
  8. DOCETAXEL [Suspect]
     Dosage: 100 MG MILLIGRAM(S), 3 WEEK, INTRAVENOUS   100 MG MILLIGRAM (S)  (3 WEEK) 90 MG MILLIGRAM(S) (3 WEEK
     Route: 042
     Dates: start: 20110609
  9. DOCETAXEL [Suspect]
     Dosage: 100 MG MILLIGRAM(S), 3 WEEK, INTRAVENOUS   100 MG MILLIGRAM (S)  (3 WEEK) 90 MG MILLIGRAM(S) (3 WEEK
     Route: 042
     Dates: start: 20110428
  10. PRIMPERAN TAB [Concomitant]

REACTIONS (18)
  - MUSCULAR WEAKNESS [None]
  - RASH [None]
  - NAUSEA [None]
  - UNEVALUABLE EVENT [None]
  - TOXICITY TO VARIOUS AGENTS [None]
  - MUCOUS MEMBRANE DISORDER [None]
  - GAIT DISTURBANCE [None]
  - MUCOSAL INFLAMMATION [None]
  - ASTHENIA [None]
  - INFECTION [None]
  - EYE PAIN [None]
  - DECREASED APPETITE [None]
  - ACTIVITIES OF DAILY LIVING IMPAIRED [None]
  - PARAESTHESIA [None]
  - NEUTROPENIA [None]
  - SKIN TOXICITY [None]
  - DRUG INTERACTION [None]
  - DYSGEUSIA [None]
